FAERS Safety Report 7080039-0 (Version None)
Quarter: 2010Q4

REPORT INFORMATION
  Report Type: 
  Country: None (occurrence: None)
  Receive Date: 20101102
  Receipt Date: 20100722
  Transmission Date: 20110411
  Serious: No
  Sender: FDA-Public Use
  Company Number: US-ABBOTT-10P-163-0659424-00

PATIENT
  Sex: Male
  Weight: 77.18 kg

DRUGS (6)
  1. BIAXIN [Suspect]
     Indication: BACTERIAL INFECTION
     Route: 048
     Dates: start: 20100616
  2. ATIVAN [Concomitant]
     Indication: RESPIRATORY DISORDER
     Route: 048
     Dates: end: 20100720
  3. ATIVAN [Concomitant]
     Indication: SLEEP DISORDER
     Dosage: AT BEDTIME
     Dates: start: 20100721
  4. INHALED STEROIDS [Concomitant]
     Indication: RESPIRATORY DISORDER
  5. KLONOPIN [Concomitant]
     Indication: RESPIRATORY DISORDER
  6. KLONOPIN [Concomitant]
     Indication: SLEEP DISORDER

REACTIONS (2)
  - INSOMNIA [None]
  - TOOTH DISCOLOURATION [None]
